FAERS Safety Report 7174016-9 (Version None)
Quarter: 2010Q4

REPORT INFORMATION
  Report Type: 
  Country: None (occurrence: None)
  Receive Date: 20101219
  Receipt Date: 20100316
  Transmission Date: 20110411
  Serious: No
  Sender: FDA-Public Use
  Company Number: US-AMGEN-KDL399794

PATIENT

DRUGS (11)
  1. ENBREL [Suspect]
     Indication: PRODUCT USED FOR UNKNOWN INDICATION
     Dosage: 50 MG, QWK
     Route: 058
  2. SIMVASTATIN [Concomitant]
     Dosage: 20 MG, UNK
  3. METHOTREXATE [Concomitant]
     Dosage: 2.5 MG, UNK
  4. PREDNISONE [Concomitant]
     Dosage: 5 MG, UNK
  5. FEXOFENADINE HCL [Concomitant]
     Dosage: 180 MG, UNK
  6. FOLIC ACID [Concomitant]
     Dosage: 1 MG, UNK
  7. FLUTICASONE/SALMETEROL [Concomitant]
  8. HYDRALAZINE [Concomitant]
     Dosage: 25 MG, UNK
  9. HYDROXYZINE HCL [Concomitant]
     Dosage: 25 MG, UNK
  10. AMITRIPTYLINE [Concomitant]
     Dosage: 150 MG, UNK
  11. ESCITALOPRAM [Concomitant]
     Dosage: 20 MG, UNK

REACTIONS (2)
  - INJECTION SITE ERYTHEMA [None]
  - INJECTION SITE HAEMATOMA [None]
